FAERS Safety Report 6105892-6 (Version None)
Quarter: 2009Q1

REPORT INFORMATION
  Report Type: 
  Country: None (occurrence: None)
  Receive Date: 20090306
  Receipt Date: 20090224
  Transmission Date: 20090719
  Serious: Yes (Hospitalization, Other)
  Sender: FDA-Public Use
  Company Number: US-BAXTER-2009BH000086

PATIENT
  Age: 58 Year
  Sex: Female
  Weight: 95 kg

DRUGS (19)
  1. HEPARIN SODIUM INJECTION [Suspect]
     Indication: MYOCARDIAL INFARCTION
     Route: 040
     Dates: start: 20070107, end: 20070107
  2. HEPARIN SODIUM INJECTION [Suspect]
     Route: 040
     Dates: start: 20070124, end: 20070124
  3. HEPARIN SODIUM INJECTION [Suspect]
     Route: 040
     Dates: start: 20070124, end: 20070124
  4. HEPARIN SODIUM 5,000 UNITS IN DEXTROSE 5% [Suspect]
     Indication: MYOCARDIAL INFARCTION
     Route: 041
     Dates: start: 20070112, end: 20070101
  5. HEPARIN SODIUM 5,000 UNITS IN DEXTROSE 5% [Suspect]
     Route: 041
     Dates: start: 20070107, end: 20070107
  6. HEPARIN SODIUM 5,000 UNITS IN DEXTROSE 5% [Suspect]
     Route: 040
     Dates: start: 20070112, end: 20070101
  7. HEPARIN SODIUM 5,000 UNITS IN DEXTROSE 5% [Suspect]
     Route: 041
     Dates: start: 20070613, end: 20070614
  8. HEPARIN SODIUM 5,000 UNITS IN DEXTROSE 5% [Suspect]
     Route: 041
     Dates: start: 20070614
  9. VYTORIN [Concomitant]
     Indication: DRUG USE FOR UNKNOWN INDICATION
     Route: 065
  10. CARVEDILOL [Concomitant]
     Indication: DRUG USE FOR UNKNOWN INDICATION
     Route: 065
  11. LEVOTHYROXINE SODIUM [Concomitant]
     Indication: DRUG USE FOR UNKNOWN INDICATION
     Route: 065
  12. PAROXETINE HCL [Concomitant]
     Indication: DRUG USE FOR UNKNOWN INDICATION
     Route: 065
  13. ASPIRIN [Concomitant]
     Indication: DRUG USE FOR UNKNOWN INDICATION
     Route: 065
  14. VITAMIN B-12 [Concomitant]
     Indication: DRUG USE FOR UNKNOWN INDICATION
     Route: 065
  15. TRIAMTERENE [Concomitant]
     Indication: DRUG USE FOR UNKNOWN INDICATION
     Route: 065
  16. IBUPROFEN [Concomitant]
     Indication: DRUG USE FOR UNKNOWN INDICATION
     Route: 065
  17. VICODIN [Concomitant]
     Indication: DRUG USE FOR UNKNOWN INDICATION
     Route: 065
  18. NAPROSYN [Concomitant]
     Indication: DRUG USE FOR UNKNOWN INDICATION
     Route: 065
  19. PROZAC [Concomitant]
     Indication: DRUG USE FOR UNKNOWN INDICATION
     Route: 065

REACTIONS (19)
  - ANOXIA [None]
  - ATELECTASIS [None]
  - BLOOD BLISTER [None]
  - CARDIOGENIC SHOCK [None]
  - CATHETER SITE HAEMORRHAGE [None]
  - COAGULOPATHY [None]
  - COMA [None]
  - HAEMORRHAGE [None]
  - HYPOTENSION [None]
  - MYOCARDIAL INFARCTION [None]
  - NAUSEA [None]
  - SWELLING [None]
  - THROMBOCYTOPENIA [None]
  - THROMBOSIS [None]
  - THROMBOSIS IN DEVICE [None]
  - UNRESPONSIVE TO STIMULI [None]
  - UPPER GASTROINTESTINAL HAEMORRHAGE [None]
  - VENTRICULAR FIBRILLATION [None]
  - VOMITING [None]
